FAERS Safety Report 17852452 (Version 2)
Quarter: 2020Q2

REPORT INFORMATION
  Report Type: Report from Study
  Country: US (occurrence: US)
  Receive Date: 20200602
  Receipt Date: 20200609
  Transmission Date: 20200714
  Serious: Yes (Hospitalization)
  Sender: FDA-Public Use
  Company Number: US-ACTELION-A-US2020-200635

PATIENT
  Sex: Female
  Weight: 58.5 kg

DRUGS (1)
  1. OPSUMIT [Suspect]
     Active Substance: MACITENTAN
     Indication: PULMONARY HYPERTENSION
     Dosage: 10 MG, QD
     Route: 048

REACTIONS (5)
  - Therapy non-responder [Unknown]
  - Dyspnoea [Unknown]
  - Hospitalisation [Unknown]
  - Cough [Unknown]
  - Insomnia [Unknown]
